FAERS Safety Report 9354486 (Version 1)
Quarter: 2013Q2

REPORT INFORMATION
  Report Type: Spontaneous
  Country: FR (occurrence: FR)
  Receive Date: 20130618
  Receipt Date: 20130618
  Transmission Date: 20140414
  Serious: Yes (Other)
  Sender: FDA-Public Use
  Company Number: FR-TEVA-412976ISR

PATIENT
  Age: 87 Year
  Sex: Female

DRUGS (2)
  1. FUROSEMIDE TEVA 40MG, SCORED TABLET [Suspect]
     Dosage: .5 DOSAGE FORMS DAILY; 0.5 TABLET ON ODD DAYS AND 1 TAB ON EVEN DAYS
     Route: 048
  2. FUROSEMIDE TEVA 40MG, SCORED TABLET [Suspect]
     Route: 048
     Dates: start: 20130508, end: 20130610

REACTIONS (2)
  - Chest pain [Recovered/Resolved]
  - Oedema peripheral [Recovered/Resolved]
